FAERS Safety Report 18953325 (Version 1)
Quarter: 2021Q1

REPORT INFORMATION
  Report Type: Report from Study
  Country: AU (occurrence: AU)
  Receive Date: 20210301
  Receipt Date: 20210301
  Transmission Date: 20210420
  Serious: Yes (Other)
  Sender: FDA-Public Use
  Company Number: AU-REGENERON PHARMACEUTICALS, INC.-2021-29015

PATIENT

DRUGS (3)
  1. EYLEA [Suspect]
     Active Substance: AFLIBERCEPT
     Indication: NEOVASCULAR AGE-RELATED MACULAR DEGENERATION
     Dosage: UNK, BOTH EYES
     Route: 031
     Dates: start: 2013
  2. EYLEA [Suspect]
     Active Substance: AFLIBERCEPT
     Dosage: UNK, RIGHT EYE, FOUR TO EIGHT WEEKS BETWEEN INJECTIONS
     Route: 031
     Dates: start: 2013
  3. EYLEA [Suspect]
     Active Substance: AFLIBERCEPT
     Dosage: UNK, ONCE, RIGHT EYE
     Route: 031
     Dates: start: 20210216, end: 20210216

REACTIONS (5)
  - Blindness transient [Recovered/Resolved]
  - Anxiety [Unknown]
  - Visual impairment [Not Recovered/Not Resolved]
  - Blindness unilateral [Unknown]
  - Intraocular pressure increased [Recovered/Resolved]

NARRATIVE: CASE EVENT DATE: 202002
